FAERS Safety Report 5656072-X (Version None)
Quarter: 2008Q1

REPORT INFORMATION
  Report Type: 
  Country: None (occurrence: None)
  Receive Date: 20080307
  Receipt Date: 20080228
  Transmission Date: 20080703
  Serious: Yes (Other)
  Sender: FDA-Public Use
  Company Number: GB-PFIZER INC-2008019765

PATIENT
  Age: 35 Year
  Sex: Female

DRUGS (5)
  1. CHANTIX [Suspect]
     Indication: SMOKING CESSATION THERAPY
     Route: 048
     Dates: start: 20071011, end: 20080201
  2. MICROGYNON [Concomitant]
  3. MIGRALEVE [Concomitant]
  4. OMEPRAZOLE [Concomitant]
  5. OXYTETRACYCLINE DIHYDRATE [Concomitant]

REACTIONS (2)
  - HEADACHE [None]
  - PAIN [None]
